FAERS Safety Report 24344881 (Version 1)
Quarter: 2024Q3

REPORT INFORMATION
  Report Type: Spontaneous
  Country: US (occurrence: None)
  Receive Date: 20240920
  Receipt Date: 20240920
  Transmission Date: 20241016
  Serious: Yes (Other)
  Sender: Public
  Company Number: None

PATIENT
  Age: 50 Year
  Sex: Female
  Weight: 81 kg

DRUGS (1)
  1. HERBALS [Suspect]
     Active Substance: HERBALS
     Indication: Snoring
     Dosage: 4 SPRAYS NASAL SPRAY AT BEDTIME
     Route: 050
     Dates: start: 20240831, end: 20240831

REACTIONS (4)
  - Pyrexia [None]
  - Myalgia [None]
  - Nausea [None]
  - Fatigue [None]

NARRATIVE: CASE EVENT DATE: 20240902
